FAERS Safety Report 4766238-9 (Version None)
Quarter: 2005Q3

REPORT INFORMATION
  Report Type: 
  Country: None (occurrence: None)
  Receive Date: 20050912
  Receipt Date: 20050607
  Transmission Date: 20060218
  Serious: Yes (Hospitalization)
  Sender: FDA-Public Use
  Company Number: US-MERCK-0506USA01439

PATIENT
  Age: 79 Year
  Sex: Male
  Weight: 85 kg

DRUGS (6)
  1. VIOXX [Suspect]
     Indication: ARTHRALGIA
     Route: 048
     Dates: start: 20020401, end: 20040901
  2. VIOXX [Suspect]
     Route: 048
     Dates: start: 20020401, end: 20040901
  3. COREG [Concomitant]
     Indication: ARTHRALGIA
     Route: 065
     Dates: start: 20040101
  4. METFORMIN [Concomitant]
     Indication: DIABETES MELLITUS
     Route: 048
  5. VASOTEC RPD [Concomitant]
     Indication: HYPERTENSION
     Route: 048
     Dates: start: 19600101
  6. ASPIRIN [Concomitant]
     Indication: HYPERTENSION
     Route: 065

REACTIONS (11)
  - AORTIC ANEURYSM [None]
  - BUNDLE BRANCH BLOCK LEFT [None]
  - CHEST PAIN [None]
  - CORONARY ARTERY DISEASE [None]
  - DIARRHOEA [None]
  - DYSPNOEA EXERTIONAL [None]
  - HEMIPARESIS [None]
  - ISCHAEMIC CARDIOMYOPATHY [None]
  - MYOCARDIAL INFARCTION [None]
  - RESPIRATORY DISTRESS [None]
  - VENTRICULAR DYSFUNCTION [None]
